FAERS Safety Report 6641353-3 (Version None)
Quarter: 2010Q1

REPORT INFORMATION
  Report Type: 
  Country: None (occurrence: None)
  Receive Date: 20100317
  Receipt Date: 20100317
  Transmission Date: 20100710
  Serious: Yes (Life-Threatening, Other)
  Sender: FDA-Public Use
  Company Number: None

PATIENT
  Age: 40 Year
  Sex: Female
  Weight: 86.1834 kg

DRUGS (1)
  1. ARMOR THYROID 60 MG FOREST LABS [Suspect]
     Indication: HYPOTHYROIDISM
     Dosage: 120 MG 1 X DAY PO
     Route: 048
     Dates: start: 19950101, end: 20100316

REACTIONS (5)
  - HYPOTHYROIDISM [None]
  - IMPAIRED WORK ABILITY [None]
  - MALAISE [None]
  - PRODUCT FORMULATION ISSUE [None]
  - UNEVALUABLE EVENT [None]
